FAERS Safety Report 6783812-9 (Version None)
Quarter: 2010Q2

REPORT INFORMATION
  Report Type: 
  Country: None (occurrence: None)
  Receive Date: 20100622
  Receipt Date: 20100614
  Transmission Date: 20101027
  Serious: Yes (Life-Threatening, Hospitalization, Disabling)
  Sender: FDA-Public Use
  Company Number: PL-AMGEN-QUU417990

PATIENT
  Sex: Male
  Weight: 57.3 kg

DRUGS (10)
  1. ARANESP [Suspect]
     Indication: DRUG USE FOR UNKNOWN INDICATION
     Route: 042
     Dates: start: 20091201, end: 20100520
  2. FUROSEMIDE [Concomitant]
     Route: 048
     Dates: start: 20061021
  3. ACIDUM FOLICUM [Concomitant]
     Route: 048
     Dates: start: 20080119
  4. OMEPRAZOLE [Concomitant]
     Route: 048
     Dates: start: 20091208
  5. ACETYLSALICYLIC ACID [Concomitant]
     Route: 048
     Dates: start: 20061226
  6. ALFACALCIDOL [Concomitant]
     Route: 048
     Dates: start: 20100112
  7. VINPOCETINE [Concomitant]
     Route: 048
     Dates: start: 20080705
  8. CALCIUM CARBONATE [Concomitant]
     Route: 048
     Dates: start: 20100130
  9. VITAMIN B COMPLEX CAP [Concomitant]
     Route: 048
     Dates: start: 20060621
  10. VITAMIN E [Concomitant]
     Route: 048
     Dates: start: 20061021

REACTIONS (1)
  - ISCHAEMIC STROKE [None]
